FAERS Safety Report 8893278 (Version 1)
Quarter: 2012Q4

REPORT INFORMATION
  Report Type: 
  Country: IN (occurrence: IN)
  Receive Date: 20121108
  Receipt Date: 20121108
  Transmission Date: 20130627
  Serious: Yes (Other)
  Sender: FDA-Public Use
  Company Number: PHHY2012IN102461

PATIENT
  Age: 7 Year
  Sex: Male

DRUGS (2)
  1. CICLOSPORIN [Suspect]
     Indication: APLASTIC ANAEMIA
  2. ANTITHYMOCYTE IMMUNOGLOBULIN [Suspect]
     Indication: APLASTIC ANAEMIA

REACTIONS (3)
  - Haemorrhage [Unknown]
  - Pyrexia [Unknown]
  - Drug ineffective [Unknown]
